FAERS Safety Report 7919664-0 (Version None)
Quarter: 2011Q4

REPORT INFORMATION
  Report Type: 
  Country: None (occurrence: None)
  Receive Date: 20111115
  Receipt Date: 20111104
  Transmission Date: 20120403
  Serious: Yes (Death, Hospitalization, Other)
  Sender: FDA-Public Use
  Company Number: DKLU1072329

PATIENT
  Age: 25 Year
  Sex: Male

DRUGS (2)
  1. SABRIL [Suspect]
     Indication: STATUS EPILEPTICUS
     Dosage: 3000 MG MILLIGRAM(S), 2 IN 1 D, ORAL
     Route: 048
     Dates: start: 20110716, end: 20110724
  2. NEMBUTAL [Suspect]
     Indication: MEDICAL INDUCTION OF COMA
     Dosage: INTRAVENOUS (NOT OTHERWISE SPECIFIED)
     Route: 042
     Dates: end: 20110701

REACTIONS (2)
  - DEEP VEIN THROMBOSIS [None]
  - TREATMENT FAILURE [None]
